FAERS Safety Report 13571898 (Version 2)
Quarter: 2017Q2

REPORT INFORMATION
  Report Type: Spontaneous
  Country: US (occurrence: US)
  Receive Date: 20170523
  Receipt Date: 20170526
  Transmission Date: 20170830
  Serious: No
  Sender: FDA-Public Use
  Company Number: US-009507513-1705USA007735

PATIENT
  Sex: Male

DRUGS (1)
  1. ASMANEX [Suspect]
     Active Substance: MOMETASONE FUROATE
     Dosage: 1 INHALATION, QD
     Route: 055
     Dates: start: 2016

REACTIONS (3)
  - Product container issue [Unknown]
  - No adverse event [Unknown]
  - Drug dose omission [Unknown]
